FAERS Safety Report 9619344 (Version 1)
Quarter: 2013Q4

REPORT INFORMATION
  Report Type: Spontaneous
  Country: US (occurrence: US)
  Receive Date: 20131014
  Receipt Date: 20131014
  Transmission Date: 20140711
  Serious: Yes (Hospitalization)
  Sender: FDA-Public Use
  Company Number: US-BAYER-2013-123566

PATIENT
  Age: 37 Year
  Sex: Female

DRUGS (16)
  1. YAZ [Suspect]
     Indication: CONTRACEPTION
  2. GIANVI [Suspect]
  3. ALVESCO [Concomitant]
  4. ADDERALL [Concomitant]
  5. BACLOFEN [Concomitant]
  6. CLONAZEPAM [Concomitant]
  7. DIPHENHYDRAMINE [Concomitant]
  8. NEXIUM [Concomitant]
  9. FAMVIR [FAMCICLOVIR] [Concomitant]
  10. NORCO [Concomitant]
  11. IBUPROFEN [Concomitant]
  12. DUONEB [Concomitant]
  13. TORADOL [Concomitant]
  14. ZOFRAN [Concomitant]
  15. SEROQUEL [Concomitant]
  16. BACTRIM DS [Concomitant]

REACTIONS (1)
  - Pulmonary embolism [Recovering/Resolving]
